FAERS Safety Report 7858674-9 (Version None)
Quarter: 2011Q3

REPORT INFORMATION
  Report Type: 
  Country: None (occurrence: None)
  Receive Date: 20110923
  Receipt Date: 20101012
  Transmission Date: 20111222
  Serious: Yes (Other)
  Sender: FDA-Public Use
  Company Number: 10-018

PATIENT

DRUGS (1)
  1. ONESEED JUNIPER 1:20 [Suspect]
     Indication: ALLERGY TO PLANTS
     Dosage: SKIN TEST

REACTIONS (1)
  - NO ADVERSE EVENT [None]
